FAERS Safety Report 4535632-3 (Version None)
Quarter: 2004Q4

REPORT INFORMATION
  Report Type: 
  Country: None (occurrence: None)
  Receive Date: 20041222
  Receipt Date: 20041222
  Transmission Date: 20050328
  Serious: No
  Sender: FDA-Public Use
  Company Number: None

PATIENT
  Age: 60 Year
  Sex: Female
  Weight: 85.7298 kg

DRUGS (2)
  1. GABAPENTIN [Suspect]
     Indication: BIPOLAR DISORDER
     Dosage: ONE PO TID
     Route: 048
     Dates: start: 20041121
  2. GABAPENTIN [Suspect]
     Indication: PSYCHOTIC DISORDER
     Dosage: ONE PO TID
     Route: 048
     Dates: start: 20041121

REACTIONS (3)
  - ABDOMINAL PAIN [None]
  - CONSTIPATION [None]
  - INSOMNIA [None]
